FAERS Safety Report 18428966 (Version 3)
Quarter: 2020Q4

REPORT INFORMATION
  Report Type: Spontaneous
  Country: RU (occurrence: RU)
  Receive Date: 20201026
  Receipt Date: 20201214
  Transmission Date: 20210114
  Serious: Yes (Other)
  Sender: FDA-Public Use
  Company Number: RU-TAKEDA-2020TUS043808

PATIENT
  Age: 66 Year
  Sex: Female

DRUGS (2)
  1. ADENURIC [Suspect]
     Active Substance: FEBUXOSTAT
     Indication: HYPERURICAEMIA
  2. ADENURIC [Suspect]
     Active Substance: FEBUXOSTAT
     Indication: BLOOD URIC ACID INCREASED
     Dosage: 80 MILLIGRAM, QD
     Route: 048
     Dates: start: 202010, end: 20201018

REACTIONS (7)
  - Fear of death [Recovered/Resolved]
  - Product quality issue [Not Recovered/Not Resolved]
  - Pyrexia [Recovered/Resolved]
  - Gastrointestinal pain [Recovered/Resolved]
  - Chills [Recovered/Resolved]
  - Pruritus [Recovered/Resolved]
  - Pain [Recovered/Resolved]

NARRATIVE: CASE EVENT DATE: 20201018
